FAERS Safety Report 5886043-X (Version None)
Quarter: 2008Q3

REPORT INFORMATION
  Report Type: 
  Country: None (occurrence: None)
  Receive Date: 20080917
  Receipt Date: 20080914
  Transmission Date: 20090109
  Serious: Yes (Hospitalization, Other)
  Sender: FDA-Public Use
  Company Number: US-RB-004018-08

PATIENT
  Age: 54 Year
  Sex: Male

DRUGS (4)
  1. SUBOXONE [Suspect]
     Indication: EUPHORIC MOOD
     Dosage: DOSING INFORMATION UNKNOWN.
     Route: 065
  2. DOXEPIN HCL [Suspect]
     Indication: DRUG USE FOR UNKNOWN INDICATION
     Dosage: DOSING INFORMATION UNKNOWN.
     Route: 065
  3. AMITRIPTYLINE HCL [Suspect]
     Indication: DRUG USE FOR UNKNOWN INDICATION
     Dosage: DOSING INFORMATION UNKNOWN.
     Route: 065
  4. METHADONE HCL [Concomitant]
     Indication: DRUG USE FOR UNKNOWN INDICATION
     Dosage: DOSING INFORMATION UNKNOWN.
     Route: 065

REACTIONS (14)
  - AGITATION [None]
  - ANXIETY [None]
  - BLOOD CALCIUM DECREASED [None]
  - BLOOD CREATINE PHOSPHOKINASE INCREASED [None]
  - BLOOD PRESSURE INCREASED [None]
  - CHEST PAIN [None]
  - CLONUS [None]
  - CONFUSIONAL STATE [None]
  - DRUG ABUSE [None]
  - INCOHERENT [None]
  - SEROTONIN SYNDROME [None]
  - SINUS TACHYCARDIA [None]
  - TACHYPNOEA [None]
  - TRISMUS [None]
